FAERS Safety Report 23205551 (Version 1)
Quarter: 2023Q4

REPORT INFORMATION
  Report Type: Spontaneous
  Country: US (occurrence: US)
  Receive Date: 20231120
  Receipt Date: 20231120
  Transmission Date: 20240110
  Serious: Yes (Hospitalization, Other)
  Sender: FDA-Public Use
  Company Number: US-GLAXOSMITHKLINE-US2023158405

PATIENT

DRUGS (1)
  1. TRELEGY ELLIPTA [Suspect]
     Active Substance: FLUTICASONE FUROATE\UMECLIDINIUM BROMIDE\VILANTEROL TRIFENATATE
     Indication: Chronic obstructive pulmonary disease
     Dosage: UNK,100/62.5/25MCG INH 30
     Dates: start: 20210101

REACTIONS (5)
  - Hospitalisation [Recovered/Resolved]
  - Thrombosis [Unknown]
  - Pulmonary thrombosis [Unknown]
  - Transient ischaemic attack [Unknown]
  - Fall [Unknown]
